FAERS Safety Report 4485373-6 (Version None)
Quarter: 2004Q4

REPORT INFORMATION
  Report Type: 
  Country: None (occurrence: None)
  Receive Date: 20041025
  Receipt Date: 20041025
  Transmission Date: 20050328
  Serious: Yes (Life-Threatening, Hospitalization)
  Sender: FDA-Public Use
  Company Number: None

PATIENT
  Age: 24 Year
  Sex: Female
  Weight: 90.7194 kg

DRUGS (2)
  1. PAXIL [Suspect]
     Indication: ANXIETY
     Dosage: 1BID
     Dates: start: 19990401, end: 19990901
  2. PAXIL [Suspect]
     Indication: DEPRESSION
     Dosage: 1BID
     Dates: start: 19990401, end: 19990901

REACTIONS (4)
  - DRUG INEFFECTIVE [None]
  - INTENTIONAL SELF-INJURY [None]
  - SUICIDAL IDEATION [None]
  - SUICIDE ATTEMPT [None]
